FAERS Safety Report 17771335 (Version 1)
Quarter: 2020Q2

REPORT INFORMATION
  Report Type: Spontaneous
  Country: US (occurrence: US)
  Receive Date: 20200512
  Receipt Date: 20200512
  Transmission Date: 20200714
  Serious: No
  Sender: FDA-Public Use
  Company Number: US-PERRIGO-19US014550

PATIENT
  Sex: Female

DRUGS (2)
  1. MICONAZOLE 3 COMBINATION PACK [Suspect]
     Active Substance: MICONAZOLE NITRATE
     Indication: PRODUCT USED FOR UNKNOWN INDICATION
     Dosage: 200 MG, SINGLE
     Route: 067
     Dates: start: 201911, end: 201911
  2. MICONAZOLE 3 COMBINATION PACK [Suspect]
     Active Substance: MICONAZOLE NITRATE
     Indication: PRODUCT USED FOR UNKNOWN INDICATION
     Dosage: 1 APPLICATION, SINGLE
     Route: 061
     Dates: start: 201911, end: 201911

REACTIONS (4)
  - Vulvovaginal swelling [Unknown]
  - Vulvovaginal pruritus [Unknown]
  - Vulvovaginal pain [Unknown]
  - Vulvovaginal burning sensation [Unknown]

NARRATIVE: CASE EVENT DATE: 201911
